FAERS Safety Report 5728065-5 (Version None)
Quarter: 2008Q2

REPORT INFORMATION
  Report Type: 
  Country: None (occurrence: None)
  Receive Date: 20080505
  Receipt Date: 20080425
  Transmission Date: 20081010
  Serious: Yes (Other)
  Sender: FDA-Public Use
  Company Number: US-PFIZER INC-2008036460

PATIENT
  Sex: Male
  Weight: 130.2 kg

DRUGS (2)
  1. LIPITOR [Suspect]
     Indication: BLOOD CHOLESTEROL INCREASED
     Dates: start: 19980101, end: 20080422
  2. ATENOLOL [Concomitant]
     Indication: HYPERTENSION

REACTIONS (11)
  - ARTHRALGIA [None]
  - BACK PAIN [None]
  - CHEST PAIN [None]
  - DRUG INEFFECTIVE [None]
  - GAIT DISTURBANCE [None]
  - GROIN PAIN [None]
  - HYPERTENSION [None]
  - MUSCULOSKELETAL CHEST PAIN [None]
  - MYALGIA [None]
  - NEPHROLITHIASIS [None]
  - PAIN [None]
